FAERS Safety Report 9582126 (Version 3)
Quarter: 2013Q4

REPORT INFORMATION
  Report Type: Spontaneous
  Country: JP (occurrence: JP)
  Receive Date: 20131002
  Receipt Date: 20131205
  Transmission Date: 20140711
  Serious: Yes (Other)
  Sender: FDA-Public Use
  Company Number: JP-UCBSA-099022

PATIENT
  Age: 63 Year
  Sex: Female
  Weight: 43 kg

DRUGS (6)
  1. CIMZIA [Suspect]
     Indication: RHEUMATOID ARTHRITIS
     Route: 058
     Dates: start: 20130619, end: 2013
  2. CIMZIA [Suspect]
     Indication: RHEUMATOID ARTHRITIS
     Route: 058
     Dates: start: 20130703, end: 2013
  3. BETAMETHASONE [Concomitant]
     Dosage: 0.5 MG DAILY
  4. CLARITHROMYCIN [Concomitant]
     Dosage: 200 MG
     Route: 048
     Dates: start: 201308
  5. AMBROXOL HYDROCHLORIDE [Concomitant]
     Dosage: 15 MG DAILY
     Route: 048
  6. FAMOTIDINE [Concomitant]
     Dosage: 10 MG DAILY
     Route: 048

REACTIONS (1)
  - Bronchopneumonia [Recovering/Resolving]
